FAERS Safety Report 9745211 (Version 1)
Quarter: 2013Q4

REPORT INFORMATION
  Report Type: Spontaneous
  Country: US (occurrence: US)
  Receive Date: 20131211
  Receipt Date: 20131211
  Transmission Date: 20140711
  Serious: No
  Sender: FDA-Public Use
  Company Number: US-PFIZER INC-2013350201

PATIENT
  Age: 49 Year
  Sex: Female
  Weight: 81.63 kg

DRUGS (4)
  1. EFFEXOR XR [Suspect]
     Indication: DEPRESSION
     Dosage: 150 MG, 1X/DAY
     Route: 048
     Dates: start: 200911, end: 201311
  2. LYRICA [Concomitant]
     Dosage: UNK
  3. TRAZODONE [Concomitant]
     Dosage: UNK
  4. AMITIZA [Concomitant]
     Dosage: UNK

REACTIONS (11)
  - Malaise [Unknown]
  - Abdominal pain upper [Unknown]
  - Abdominal pain upper [Unknown]
  - Nausea [Unknown]
  - Feeling abnormal [Unknown]
  - Thinking abnormal [Unknown]
  - Mood altered [Unknown]
  - Emotional disorder [Unknown]
  - Frustration [Unknown]
  - Crying [Unknown]
  - Drug ineffective [Unknown]
